FAERS Safety Report 7632282-7 (Version None)
Quarter: 2011Q3

REPORT INFORMATION
  Report Type: 
  Country: None (occurrence: None)
  Receive Date: 20110725
  Receipt Date: 20100721
  Transmission Date: 20111222
  Serious: Yes (Other)
  Sender: FDA-Public Use
  Company Number: US-BRISTOL-MYERS SQUIBB COMPANY-15191752

PATIENT
  Age: 59 Year
  Sex: Female
  Weight: 100 kg

DRUGS (20)
  1. ENOXAPARIN [Suspect]
  2. ALBUTEROL INHALER [Concomitant]
  3. HYDROCODONE BITARTRATE AND ACETAMINOPHEN [Concomitant]
  4. PREDNISOLONE [Concomitant]
  5. ZOLOFT [Concomitant]
  6. SOLU-MEDROL [Concomitant]
  7. LEVOTHYROXINE SODIUM [Concomitant]
  8. LISINOPRIL [Concomitant]
  9. LASIX [Concomitant]
  10. IRON TABLETS [Concomitant]
  11. INSULIN [Concomitant]
  12. NEXIUM [Concomitant]
  13. COMBIVENT [Concomitant]
  14. TOPROL-XL [Concomitant]
  15. ESOMEPRAZOLE MAGNESIUM [Concomitant]
  16. FUROSEMIDE [Concomitant]
  17. IBUPROFEN [Concomitant]
  18. COUMADIN [Suspect]
     Indication: DEEP VEIN THROMBOSIS
     Dosage: 4 MG ON TUES,THURSDAY 6MG + EACH DAY THE REST OF THE DAYS OF THE WEEK
  19. SIMVASTATIN [Concomitant]
  20. METOPROLOL TARTRATE [Concomitant]

REACTIONS (1)
  - BLUE TOE SYNDROME [None]
